FAERS Safety Report 7028397-7 (Version None)
Quarter: 2010Q4

REPORT INFORMATION
  Report Type: 
  Country: None (occurrence: None)
  Receive Date: 20101005
  Receipt Date: 20100924
  Transmission Date: 20110411
  Serious: Yes (Other)
  Sender: FDA-Public Use
  Company Number: DE-PFIZER INC-2010106975

PATIENT
  Age: 53 Year
  Sex: Male
  Weight: 150 kg

DRUGS (2)
  1. ZYVOX [Suspect]
     Indication: ARTHRITIS BACTERIAL
     Dosage: 600 MG, 2X/DAY
     Route: 048
     Dates: start: 20100812, end: 20100902
  2. ZYLORIC ^FRESENIUS^ [Concomitant]
     Dosage: 300 MG DAILY
     Route: 048

REACTIONS (6)
  - BLISTER [None]
  - DIARRHOEA [None]
  - HAEMATOCHEZIA [None]
  - HYPERSENSITIVITY [None]
  - RASH [None]
  - STOMATITIS [None]
